FAERS Safety Report 7359363-X (Version None)
Quarter: 2011Q1

REPORT INFORMATION
  Report Type: 
  Country: None (occurrence: None)
  Receive Date: 20110317
  Receipt Date: 20090804
  Transmission Date: 20110831
  Serious: No
  Sender: FDA-Public Use
  Company Number: US-PFIZER INC-2009250806

PATIENT
  Sex: Female

DRUGS (9)
  1. NORVASC [Suspect]
  2. CLONIDINE HCL [Concomitant]
     Indication: HYPERTENSION
     Dosage: UNK
  3. INSULIN [Concomitant]
     Indication: DIABETES MELLITUS
     Dosage: 1 UNIT PER 15 GRAMS OF CARBS
  4. HYDRALAZINE [Suspect]
  5. FUROSEMIDE [Concomitant]
     Indication: HYPERTENSION
     Dosage: UNK
  6. INSULIN GLARGINE [Concomitant]
     Indication: DIABETES MELLITUS
     Dosage: IN THE MORNING
  7. CO-DIOVAN [Concomitant]
     Indication: HYPERTENSION
     Dosage: UNK
  8. METOPROLOL SUCCINATE [Concomitant]
     Indication: HYPERTENSION
     Dosage: UNK
  9. ACCUPRIL [Suspect]

REACTIONS (4)
  - HEADACHE [None]
  - NAUSEA [None]
  - DIZZINESS [None]
  - FATIGUE [None]
